FAERS Safety Report 5277209-0 (Version None)
Quarter: 2007Q1

REPORT INFORMATION
  Report Type: 
  Country: None (occurrence: None)
  Receive Date: 20061213
  Receipt Date: 20050106
  Transmission Date: 20070707
  Serious: Yes (Hospitalization)
  Sender: FDA-Public Use
  Company Number: 2004UW23136

PATIENT
  Age: 28 Year
  Sex: Male

DRUGS (8)
  1. SEROQUEL [Suspect]
  2. NEXIUM [Suspect]
  3. DURAGESIC-100 [Concomitant]
  4. RISPERDAL [Concomitant]
  5. COGENTIN [Concomitant]
  6. ZOLOFT [Concomitant]
  7. TRYLEPTAL [Concomitant]
  8. NO MATCH [Concomitant]

REACTIONS (1)
  - PANCREATITIS [None]
